FAERS Safety Report 9162579 (Version 2)
Quarter: 2013Q2

REPORT INFORMATION
  Report Type: Spontaneous
  Country: US (occurrence: US)
  Receive Date: 20130314
  Receipt Date: 20130425
  Transmission Date: 20140414
  Serious: No
  Sender: FDA-Public Use
  Company Number: US-PFIZER INC-2013086326

PATIENT
  Age: 56 Year
  Sex: Female
  Weight: 84.4 kg

DRUGS (9)
  1. LYRICA [Suspect]
     Indication: MYALGIA
     Dosage: 100 MG, 3X/DAY
     Route: 048
  2. LYRICA [Suspect]
     Indication: MULTIPLE SCLEROSIS
  3. LYRICA [Suspect]
     Indication: FIBROMYALGIA
  4. EFFEXOR [Concomitant]
     Dosage: 150 MG, 1X/DAY
  5. INTERFERON [Concomitant]
     Dosage: UNKNOWN DOSE WEEKLY
  6. DIOVAN (VALSARTAN) [Concomitant]
     Indication: HYPERTENSION
     Dosage: UNK
  7. VALIUM [Concomitant]
     Indication: TREMOR
     Dosage: UNK
  8. SENOKOT [Concomitant]
     Dosage: UNK
  9. SYNTHROID [Concomitant]
     Indication: THYROID DISORDER
     Dosage: UNK

REACTIONS (3)
  - Insomnia [Unknown]
  - Dizziness [Unknown]
  - Weight increased [Unknown]
